FAERS Safety Report 18868230 (Version 2)
Quarter: 2021Q1

REPORT INFORMATION
  Report Type: Report from Study
  Country: US (occurrence: US)
  Receive Date: 20210209
  Receipt Date: 20210218
  Transmission Date: 20210420
  Serious: Yes (Hospitalization)
  Sender: FDA-Public Use
  Company Number: US-JNJFOC-20210201070

PATIENT
  Age: 28 Year
  Sex: Female
  Weight: 60 kg

DRUGS (15)
  1. ERDAFITINIB. [Suspect]
     Active Substance: ERDAFITINIB
     Indication: NASOPHARYNGEAL CANCER
     Route: 048
     Dates: start: 20201222
  2. PARAFFIN [Concomitant]
     Active Substance: PARAFFIN
     Indication: NASAL DRYNESS
     Route: 061
     Dates: start: 20210112
  3. ERDAFITINIB. [Suspect]
     Active Substance: ERDAFITINIB
     Route: 048
     Dates: start: 20210112, end: 20210125
  4. DRONABINOL. [Concomitant]
     Active Substance: DRONABINOL
     Indication: DECREASED APPETITE
     Route: 048
     Dates: start: 2017
  5. PANTOPRAZOLE [Concomitant]
     Active Substance: PANTOPRAZOLE
     Indication: GASTROOESOPHAGEAL REFLUX DISEASE
     Route: 048
  6. XANAX [Concomitant]
     Active Substance: ALPRAZOLAM
     Indication: ANXIETY
     Route: 048
     Dates: start: 20201125
  7. SALINE [SODIUM CHLORIDE] [Concomitant]
     Active Substance: SODIUM CHLORIDE
     Indication: NASAL DRYNESS
     Route: 045
     Dates: start: 20210105
  8. FLUTICASONE. [Concomitant]
     Active Substance: FLUTICASONE
     Indication: MULTIPLE ALLERGIES
     Route: 045
     Dates: start: 202006
  9. SEVELAMER [Concomitant]
     Active Substance: SEVELAMER
     Indication: HYPERPHOSPHATAEMIA
     Route: 048
     Dates: start: 20210105
  10. BIOTENE [FLUORINE;XYLITOL] [Concomitant]
     Active Substance: SODIUM FLUORIDE\SODIUM MONOFLUOROPHOSPHATE
     Indication: STOMATITIS
     Route: 048
     Dates: start: 20210105
  11. LEVOTHYROXINE. [Concomitant]
     Active Substance: LEVOTHYROXINE
     Indication: HYPOTHYROIDISM
     Route: 048
     Dates: start: 2019
  12. CALCIUM CARBONATE;MAGNESIUM HYDROXIDE;PHOSPHORIC ACID SODIUM;SODIUM BI [Concomitant]
     Indication: HYPOMAGNESAEMIA
     Dosage: 71.5?119MG
     Route: 048
     Dates: start: 20201125
  13. DEXAMETHASONE. [Concomitant]
     Active Substance: DEXAMETHASONE
     Indication: STOMATITIS
     Route: 048
     Dates: start: 20210112
  14. SORBITOL. [Concomitant]
     Active Substance: SORBITOL
     Indication: STOMATITIS
     Route: 048
     Dates: start: 20210112
  15. PURE BAKING SODA [Concomitant]
     Active Substance: SODIUM BICARBONATE
     Indication: STOMATITIS
     Route: 048
     Dates: start: 20210105

REACTIONS (1)
  - Colitis [Recovering/Resolving]

NARRATIVE: CASE EVENT DATE: 20210127
